FAERS Safety Report 8259891-9 (Version None)
Quarter: 2012Q2

REPORT INFORMATION
  Report Type: 
  Country: None (occurrence: None)
  Receive Date: 20120404
  Receipt Date: 20120402
  Transmission Date: 20120825
  Serious: Yes (Other)
  Sender: FDA-Public Use
  Company Number: LT-GLAXOSMITHKLINE-B0792157A

PATIENT
  Sex: Female
  Weight: 54 kg

DRUGS (3)
  1. CEFUROXIME [Suspect]
     Indication: BRONCHITIS
     Dosage: 1000MG PER DAY
     Route: 065
     Dates: start: 20120320, end: 20120325
  2. GELOMYRTOL FORTE [Concomitant]
     Indication: PRODUCTIVE COUGH
     Dosage: 3CAP PER DAY
     Dates: start: 20120320, end: 20120325
  3. IBUPROFEN [Concomitant]
     Indication: PYREXIA
     Dosage: 400MG PER DAY
     Dates: start: 20120320, end: 20120325

REACTIONS (3)
  - DIARRHOEA HAEMORRHAGIC [None]
  - DIARRHOEA [None]
  - ABDOMINAL PAIN [None]
